FAERS Safety Report 14073885 (Version 2)
Quarter: 2017Q4

REPORT INFORMATION
  Report Type: Spontaneous
  Country: US (occurrence: US)
  Receive Date: 20171010
  Receipt Date: 20171129
  Transmission Date: 20180321
  Serious: No
  Sender: FDA-Public Use
  Company Number: US-JNJFOC-20170913672

PATIENT
  Age: 65 Year
  Sex: Female
  Weight: 71.67 kg

DRUGS (2)
  1. TYLENOL 8HR [Suspect]
     Active Substance: ACETAMINOPHEN
     Route: 048
  2. TYLENOL 8HR [Suspect]
     Active Substance: ACETAMINOPHEN
     Indication: PAIN
     Route: 048
     Dates: start: 20170912, end: 20170912

REACTIONS (6)
  - Poor quality drug administered [Recovering/Resolving]
  - Drug ineffective [Unknown]
  - Suspected product tampering [Unknown]
  - Somnolence [Recovering/Resolving]
  - Discomfort [Recovering/Resolving]
  - Product container seal issue [Unknown]

NARRATIVE: CASE EVENT DATE: 20170912
